FAERS Safety Report 25940576 (Version 1)
Quarter: 2025Q4

REPORT INFORMATION
  Report Type: Spontaneous
  Country: EU (occurrence: EU)
  Receive Date: 20251020
  Receipt Date: 20251020
  Transmission Date: 20260118
  Serious: Yes (Other)
  Sender: MYLAN
  Company Number: EU-BIOGARAN-B25001761

PATIENT
  Age: 73 Year
  Sex: Female

DRUGS (28)
  1. CANDESARTAN [Suspect]
     Active Substance: CANDESARTAN
     Indication: Product used for unknown indication
     Dosage: 1 DOSAGE FORM, QD (1 TABLET PER DAY)
     Dates: start: 202410, end: 202501
  2. CANDESARTAN [Suspect]
     Active Substance: CANDESARTAN
     Dosage: 1 DOSAGE FORM, QD (1 TABLET PER DAY)
     Route: 065
     Dates: start: 202410, end: 202501
  3. CANDESARTAN [Suspect]
     Active Substance: CANDESARTAN
     Dosage: 1 DOSAGE FORM, QD (1 TABLET PER DAY)
     Route: 065
     Dates: start: 202410, end: 202501
  4. CANDESARTAN [Suspect]
     Active Substance: CANDESARTAN
     Dosage: 1 DOSAGE FORM, QD (1 TABLET PER DAY)
     Dates: start: 202410, end: 202501
  5. AMLODIPINE [Suspect]
     Active Substance: AMLODIPINE BESYLATE
     Indication: Product used for unknown indication
     Dosage: UNK
  6. AMLODIPINE [Suspect]
     Active Substance: AMLODIPINE BESYLATE
     Dosage: UNK
     Route: 065
  7. AMLODIPINE [Suspect]
     Active Substance: AMLODIPINE BESYLATE
     Dosage: UNK
     Route: 065
  8. AMLODIPINE [Suspect]
     Active Substance: AMLODIPINE BESYLATE
     Dosage: UNK
  9. SIMVASTATIN [Suspect]
     Active Substance: SIMVASTATIN
     Indication: Product used for unknown indication
     Dosage: 1 DOSAGE FORM, QD (1 TABLET IN THE EVENING)
  10. SIMVASTATIN [Suspect]
     Active Substance: SIMVASTATIN
     Dosage: 1 DOSAGE FORM, QD (1 TABLET IN THE EVENING)
     Route: 048
  11. SIMVASTATIN [Suspect]
     Active Substance: SIMVASTATIN
     Dosage: 1 DOSAGE FORM, QD (1 TABLET IN THE EVENING)
     Route: 048
  12. SIMVASTATIN [Suspect]
     Active Substance: SIMVASTATIN
     Dosage: 1 DOSAGE FORM, QD (1 TABLET IN THE EVENING)
  13. IRBESARTAN [Suspect]
     Active Substance: IRBESARTAN
     Indication: Hypertension
     Dosage: 1 DOSAGE FORM, QD (1 TABLET PER DAY)
     Dates: start: 202501, end: 202505
  14. IRBESARTAN [Suspect]
     Active Substance: IRBESARTAN
     Dosage: 1 DOSAGE FORM, QD (1 TABLET PER DAY)
     Route: 048
     Dates: start: 202501, end: 202505
  15. IRBESARTAN [Suspect]
     Active Substance: IRBESARTAN
     Dosage: 1 DOSAGE FORM, QD (1 TABLET PER DAY)
     Route: 048
     Dates: start: 202501, end: 202505
  16. IRBESARTAN [Suspect]
     Active Substance: IRBESARTAN
     Dosage: 1 DOSAGE FORM, QD (1 TABLET PER DAY)
     Dates: start: 202501, end: 202505
  17. IRBESARTAN [Suspect]
     Active Substance: IRBESARTAN
     Indication: Hypertension
     Dosage: 1 DOSAGE FORM, QD (1 TABLET PER DAY)
     Dates: start: 202505
  18. IRBESARTAN [Suspect]
     Active Substance: IRBESARTAN
     Dosage: 1 DOSAGE FORM, QD (1 TABLET PER DAY)
     Route: 048
     Dates: start: 202505
  19. IRBESARTAN [Suspect]
     Active Substance: IRBESARTAN
     Dosage: 1 DOSAGE FORM, QD (1 TABLET PER DAY)
     Route: 048
     Dates: start: 202505
  20. IRBESARTAN [Suspect]
     Active Substance: IRBESARTAN
     Dosage: 1 DOSAGE FORM, QD (1 TABLET PER DAY)
     Dates: start: 202505
  21. ELIQUIS [Concomitant]
     Active Substance: APIXABAN
     Indication: Anticoagulant therapy
     Dosage: 2 DOSAGE FORM, QD (1 TABLET IN THE MORNING AND 1 TABLET IN THE EVENING)
  22. ELIQUIS [Concomitant]
     Active Substance: APIXABAN
     Dosage: 2 DOSAGE FORM, QD (1 TABLET IN THE MORNING AND 1 TABLET IN THE EVENING)
     Route: 048
  23. ELIQUIS [Concomitant]
     Active Substance: APIXABAN
     Dosage: 2 DOSAGE FORM, QD (1 TABLET IN THE MORNING AND 1 TABLET IN THE EVENING)
     Route: 048
  24. ELIQUIS [Concomitant]
     Active Substance: APIXABAN
     Dosage: 2 DOSAGE FORM, QD (1 TABLET IN THE MORNING AND 1 TABLET IN THE EVENING)
  25. SOTALOL [Concomitant]
     Active Substance: SOTALOL
     Indication: Product used for unknown indication
     Dosage: 0.5 DOSAGE FORM, QD (1/4 TAB IN THE MORNING AND ? TABLET IN THE EVENING)
  26. SOTALOL [Concomitant]
     Active Substance: SOTALOL
     Dosage: 0.5 DOSAGE FORM, QD (1/4 TAB IN THE MORNING AND ? TABLET IN THE EVENING)
     Route: 048
  27. SOTALOL [Concomitant]
     Active Substance: SOTALOL
     Dosage: 0.5 DOSAGE FORM, QD (1/4 TAB IN THE MORNING AND ? TABLET IN THE EVENING)
     Route: 048
  28. SOTALOL [Concomitant]
     Active Substance: SOTALOL
     Dosage: 0.5 DOSAGE FORM, QD (1/4 TAB IN THE MORNING AND ? TABLET IN THE EVENING)

REACTIONS (8)
  - Hypotension [Not Recovered/Not Resolved]
  - Nocturnal hypertension [Unknown]
  - Blood pressure inadequately controlled [Unknown]
  - Malaise [Unknown]
  - Fatigue [Unknown]
  - Drug ineffective [Not Recovered/Not Resolved]
  - Contraindicated product administered [Unknown]
  - Intentional product misuse [Unknown]

NARRATIVE: CASE EVENT DATE: 20250501
